FAERS Safety Report 8158996-0 (Version None)
Quarter: 2012Q1

REPORT INFORMATION
  Report Type: 
  Country: None (occurrence: None)
  Receive Date: 20120223
  Receipt Date: 20120214
  Transmission Date: 20120608
  Serious: Yes (Other)
  Sender: FDA-Public Use
  Company Number: PHHY2011NO72578

PATIENT
  Sex: Female

DRUGS (3)
  1. METFORMIN HCL [Suspect]
     Dosage: UNK UKN, UNK
     Route: 048
     Dates: start: 20110501
  2. DIOVAN [Interacting]
     Dosage: UNK UKN, UNK
     Route: 048
     Dates: start: 20110501
  3. GENTAMICIN [Interacting]
     Dosage: UNK UKN, UNK
     Route: 051
     Dates: start: 20110501

REACTIONS (2)
  - RENAL FAILURE [None]
  - DEHYDRATION [None]
